FAERS Safety Report 16899622 (Version 5)
Quarter: 2020Q1

REPORT INFORMATION
  Report Type: Spontaneous
  Country: US (occurrence: US)
  Receive Date: 20191009
  Receipt Date: 20200229
  Transmission Date: 20200409
  Serious: Yes (Hospitalization)
  Sender: FDA-Public Use
  Company Number: US-TEVA-2019-US-1118016

PATIENT
  Sex: Female

DRUGS (22)
  1. PHENERGAN [Concomitant]
     Active Substance: PROMETHAZINE HYDROCHLORIDE
  2. LOVENOX [Concomitant]
     Active Substance: ENOXAPARIN SODIUM
  3. CATHFLO ACTIVASE [Concomitant]
     Active Substance: ALTEPLASE
  4. POTASSIUM [Concomitant]
     Active Substance: POTASSIUM
  5. FLAGYL [Concomitant]
     Active Substance: METRONIDAZOLE\METRONIDAZOLE HYDROCHLORIDE
  6. SYNRIBO [Suspect]
     Active Substance: OMACETAXINE MEPESUCCINATE
     Dosage: 3.1 MG/0.89ML, BIDX7 DAYS 21 DAYS OFF
     Route: 065
     Dates: start: 20190925
  7. PEPCID [Concomitant]
     Active Substance: FAMOTIDINE
  8. MAGNESIUM [Concomitant]
     Active Substance: MAGNESIUM
  9. GLUCAGON EMERGENCY KIT [Concomitant]
     Active Substance: GLUCAGON
  10. SYNRIBO [Suspect]
     Active Substance: OMACETAXINE MEPESUCCINATE
     Dosage: 2.61 MG/0.74ML BIDX7 DAYS
     Route: 065
     Dates: start: 20191025
  11. FLUCONAZOLE. [Concomitant]
     Active Substance: FLUCONAZOLE
  12. ATIVAN [Concomitant]
     Active Substance: LORAZEPAM
  13. SYNRIBO [Suspect]
     Active Substance: OMACETAXINE MEPESUCCINATE
     Indication: CHRONIC MYELOID LEUKAEMIA
     Dosage: 3.1 MG/0.65ML, BIDX14 DAYS
     Route: 065
     Dates: start: 20190919
  14. SYNRIBO [Suspect]
     Active Substance: OMACETAXINE MEPESUCCINATE
     Indication: MAST CELL ACTIVATION SYNDROME
     Dosage: 3.1 MG/0.89ML, BIDX7 DAYS
     Route: 065
     Dates: start: 20191003
  15. BENADRYL [Concomitant]
     Active Substance: DIPHENHYDRAMINE HYDROCHLORIDE
  16. METHYLPREDNISOLONE. [Concomitant]
     Active Substance: METHYLPREDNISOLONE
  17. GLUCAGON. [Concomitant]
     Active Substance: GLUCAGON
  18. ZOFRAN [Concomitant]
     Active Substance: ONDANSETRON HYDROCHLORIDE
  19. LACTATED RINGERS SOLUTION [Concomitant]
     Active Substance: CALCIUM CHLORIDE\POTASSIUM CHLORIDE\SODIUM CHLORIDE\SODIUM LACTATE
  20. EPINEPHRINE. [Concomitant]
     Active Substance: EPINEPHRINE
  21. EMGALITY [Concomitant]
     Active Substance: GALCANEZUMAB-GNLM
  22. ZOSYN [Concomitant]
     Active Substance: PIPERACILLIN SODIUM\TAZOBACTAM SODIUM

REACTIONS (3)
  - Injection site erythema [Unknown]
  - Sepsis [Unknown]
  - Product dose omission [Unknown]
